FAERS Safety Report 4572189-5 (Version None)
Quarter: 2005Q1

REPORT INFORMATION
  Report Type: 
  Country: None (occurrence: None)
  Receive Date: 20050202
  Receipt Date: 20050111
  Transmission Date: 20050727
  Serious: Yes (Other)
  Sender: FDA-Public Use
  Company Number: US_0501110527

PATIENT
  Age: 27 Year
  Sex: Female

DRUGS (4)
  1. CYMBALTA [Suspect]
     Indication: DEPRESSION
     Dosage: 30 MG DAY
     Dates: start: 20041220, end: 20041225
  2. LEXAPRO [Concomitant]
  3. CLONOPIN             (CLONAZEPAM) [Concomitant]
  4. AMBIEN [Concomitant]

REACTIONS (3)
  - DEPRESSION [None]
  - HYPOMANIA [None]
  - SUICIDAL IDEATION [None]
